FAERS Safety Report 16376747 (Version 1)
Quarter: 2019Q3

REPORT INFORMATION
  Report Type: Spontaneous
  Country: US (occurrence: US)
  Receive Date: 20190530
  Receipt Date: 20190530
  Transmission Date: 20191004
  Serious: Yes (Other)
  Sender: FDA-Public Use
  Company Number: None

PATIENT
  Age: 72 Year
  Sex: Male
  Weight: 94.5 kg

DRUGS (16)
  1. ABIRATERONE ACETATE. [Suspect]
     Active Substance: ABIRATERONE ACETATE
     Indication: PROSTATE CANCER
     Route: 048
  2. XARELTO [Concomitant]
     Active Substance: RIVAROXABAN
  3. PIOGLITAZONE HCL [Concomitant]
     Active Substance: PIOGLITAZONE
  4. BACTRIM [Concomitant]
     Active Substance: SULFAMETHOXAZOLE\TRIMETHOPRIM
  5. JANUVIA [Concomitant]
     Active Substance: SITAGLIPTIN PHOSPHATE
  6. METFORMIN HCL [Concomitant]
     Active Substance: METFORMIN HYDROCHLORIDE
  7. ALENDRONATE SODIUM. [Concomitant]
     Active Substance: ALENDRONATE SODIUM
  8. VICTOZA [Concomitant]
     Active Substance: LIRAGLUTIDE
  9. CALCIUM 500 + D [Concomitant]
     Active Substance: CALCIUM\VITAMIN D
  10. PREDNISONE. [Concomitant]
     Active Substance: PREDNISONE
  11. ELIGARD [Concomitant]
     Active Substance: LEUPROLIDE ACETATE
  12. LOARTAN POTASSIUM [Concomitant]
  13. OMEGA 3 [Concomitant]
     Active Substance: OMEGA-3 FATTY ACIDS
  14. DILTIAZEM HCL ER [Concomitant]
     Active Substance: DILTIAZEM HYDROCHLORIDE
  15. COENZYME Q10 [Concomitant]
     Active Substance: UBIDECARENONE
  16. GLIPIZIDE ER [Concomitant]
     Active Substance: GLIPIZIDE

REACTIONS (2)
  - Urinary tract infection [None]
  - Cystitis [None]
